FAERS Safety Report 9341670 (Version 3)
Quarter: 2013Q3

REPORT INFORMATION
  Report Type: Spontaneous
  Country: US (occurrence: US)
  Receive Date: 20130611
  Receipt Date: 20130710
  Transmission Date: 20140515
  Serious: No
  Sender: FDA-Public Use
  Company Number: US-PFIZER INC-2013125761

PATIENT
  Age: 40 Year
  Sex: Female
  Weight: 72.56 kg

DRUGS (6)
  1. SUTENT [Suspect]
     Indication: INTRAOCULAR MELANOMA
     Dosage: 25 MG, 1X/DAY
     Dates: start: 20130422
  2. SYNTHROID [Concomitant]
     Dosage: UNK
  3. XANAX [Concomitant]
     Dosage: UNK, AS NEEDED
  4. ADVIL [Concomitant]
     Dosage: UNK, AS NEEDED
  5. PRILOSEC [Concomitant]
     Dosage: UNK
  6. OMEPRAZOLE [Concomitant]
     Dosage: UNK

REACTIONS (4)
  - White blood cell count decreased [Recovering/Resolving]
  - Fatigue [Not Recovered/Not Resolved]
  - Off label use [Unknown]
  - Headache [Recovered/Resolved]
